FAERS Safety Report 13418275 (Version 1)
Quarter: 2017Q2

REPORT INFORMATION
  Report Type: Report from Study
  Country: US (occurrence: US)
  Receive Date: 20170407
  Receipt Date: 20170407
  Transmission Date: 20170830
  Serious: Yes (Life-Threatening, Hospitalization, Congenital Anomaly, Other)
  Sender: FDA-Public Use
  Company Number: US-BRISTOL-MYERS SQUIBB COMPANY-BMS-2017-027002

PATIENT
  Sex: Female

DRUGS (3)
  1. ARIPIPRAZOLE. [Suspect]
     Active Substance: ARIPIPRAZOLE
     Indication: PRODUCT USED FOR UNKNOWN INDICATION
     Dosage: 2.5 MG, UNK
     Route: 064
  2. SEROQUEL [Suspect]
     Active Substance: QUETIAPINE FUMARATE
     Indication: PRODUCT USED FOR UNKNOWN INDICATION
     Dosage: 1 DF, UNK
     Route: 064
  3. ZOLOFT [Suspect]
     Active Substance: SERTRALINE HYDROCHLORIDE
     Indication: PRODUCT USED FOR UNKNOWN INDICATION
     Route: 064

REACTIONS (11)
  - Persistent foetal circulation [Unknown]
  - Fluid retention [Unknown]
  - Foetal heart rate abnormal [Unknown]
  - Hypotonia neonatal [Recovered/Resolved]
  - Premature baby [Unknown]
  - Neonatal respiratory distress syndrome [Recovered/Resolved]
  - Congenital heart valve disorder [Not Recovered/Not Resolved]
  - Foetal exposure during pregnancy [Unknown]
  - Continuous positive airway pressure [Unknown]
  - Hemivertebra [Not Recovered/Not Resolved]
  - Gastrointestinal tube insertion [Unknown]

NARRATIVE: CASE EVENT DATE: 20130906
